FAERS Safety Report 5205687-1 (Version None)
Quarter: 2007Q1

REPORT INFORMATION
  Report Type: 
  Country: None (occurrence: None)
  Receive Date: 20070111
  Receipt Date: 20070104
  Transmission Date: 20070707
  Serious: Yes (Other)
  Sender: FDA-Public Use
  Company Number: US-JNJFOC-20070101467

PATIENT
  Sex: Male

DRUGS (6)
  1. REMICADE [Suspect]
     Route: 042
  2. REMICADE [Suspect]
     Indication: CROHN'S DISEASE
     Route: 042
  3. OXECON [Concomitant]
     Indication: PAIN
  4. STAVIX [Concomitant]
  5. REGLAN [Concomitant]
     Indication: VOMITING
  6. MERCAPTOPURINE [Concomitant]
     Indication: CROHN'S DISEASE

REACTIONS (3)
  - MUSCLE SPASMS [None]
  - PYREXIA [None]
  - VOMITING [None]
